FAERS Safety Report 15553870 (Version 2)
Quarter: 2019Q1

REPORT INFORMATION
  Report Type: Spontaneous
  Country: GB (occurrence: GB)
  Receive Date: 20181026
  Receipt Date: 20190103
  Transmission Date: 20190417
  Serious: Yes (Hospitalization)
  Sender: FDA-Public Use
  Company Number: GB-BIOGEN-2017BI00396688

PATIENT
  Sex: Female

DRUGS (2)
  1. AVONEX [Suspect]
     Active Substance: INTERFERON BETA-1A
     Route: 030
     Dates: start: 20070605
  2. AVONEX [Suspect]
     Active Substance: INTERFERON BETA-1A
     Indication: MULTIPLE SCLEROSIS
     Route: 030
     Dates: start: 20070605

REACTIONS (9)
  - Pain [Unknown]
  - Aphonia [Unknown]
  - Hypoacusis [Unknown]
  - Multiple sclerosis [Unknown]
  - Mobility decreased [Unknown]
  - Malaise [Unknown]
  - Drug ineffective [Unknown]
  - Back pain [Unknown]
  - Arthralgia [Unknown]
